FAERS Safety Report 20763137 (Version 1)
Quarter: 2022Q2

REPORT INFORMATION
  Report Type: Spontaneous
  Country: US (occurrence: US)
  Receive Date: 20220428
  Receipt Date: 20220428
  Transmission Date: 20220720
  Serious: No
  Sender: FDA-Public Use
  Company Number: US-PFIZER INC-202200597629

PATIENT
  Age: 83 Year

DRUGS (2)
  1. PROTONIX [Suspect]
     Active Substance: PANTOPRAZOLE SODIUM
     Indication: Oesophageal disorder
     Dosage: UNK
  2. PROTONIX [Suspect]
     Active Substance: PANTOPRAZOLE SODIUM
     Indication: Dyspepsia

REACTIONS (4)
  - Drug hypersensitivity [Unknown]
  - Pain [Unknown]
  - Abdominal pain upper [Unknown]
  - Infection [Unknown]
